FAERS Safety Report 22101789 (Version 1)
Quarter: 2023Q1

REPORT INFORMATION
  Report Type: Other
  Country: PT (occurrence: PT)
  Receive Date: 20230316
  Receipt Date: 20230316
  Transmission Date: 20230417
  Serious: Yes (Other)
  Sender: FDA-Public Use
  Company Number: PT-CELLTRION HEALTHCARE HUNGARY KFT-2022PT011708

PATIENT
  Age: 62 Year
  Sex: Female

DRUGS (1)
  1. RITUXIMAB [Suspect]
     Active Substance: RITUXIMAB
     Indication: Idiopathic pulmonary fibrosis
     Dosage: CONCENTRATE FOR SOLUTION FOR INFUSION
     Route: 042

REACTIONS (2)
  - Anaphylactic reaction [Unknown]
  - Off label use [Unknown]
